FAERS Safety Report 7012106-1 (Version None)
Quarter: 2010Q3

REPORT INFORMATION
  Report Type: 
  Country: None (occurrence: None)
  Receive Date: 20100924
  Receipt Date: 20100908
  Transmission Date: 20110219
  Serious: Yes (Hospitalization)
  Sender: FDA-Public Use
  Company Number: US-JNJFOC-20100902579

PATIENT
  Age: 25 Year
  Sex: Female

DRUGS (1)
  1. EXTRA STRENGTH TYLENOL PM [Suspect]
     Indication: PRODUCT USED FOR UNKNOWN INDICATION
     Dosage: 80  TABLETS AT ONE TIME
     Route: 065

REACTIONS (7)
  - AGITATION [None]
  - BLOOD ALCOHOL INCREASED [None]
  - BODY TEMPERATURE INCREASED [None]
  - INTENTIONAL OVERDOSE [None]
  - LIVER INJURY [None]
  - MYDRIASIS [None]
  - TACHYCARDIA [None]
